FAERS Safety Report 8475606-3 (Version None)
Quarter: 2012Q2

REPORT INFORMATION
  Report Type: 
  Country: None (occurrence: None)
  Receive Date: 20120628
  Receipt Date: 20120614
  Transmission Date: 20120825
  Serious: Yes (Hospitalization)
  Sender: FDA-Public Use
  Company Number: US-MYLANLABS-2012S1012277

PATIENT
  Age: 36 Year
  Sex: Female

DRUGS (10)
  1. LAMOTRIGINE [Suspect]
     Indication: BIPOLAR DISORDER
     Route: 065
  2. ONDANSETRON (ZOFRAN) [Suspect]
     Route: 065
  3. LOXAPINE [Suspect]
     Indication: BIPOLAR DISORDER
     Route: 065
  4. TRAZODONE HCL [Suspect]
     Indication: BIPOLAR DISORDER
     Route: 065
  5. CIPROFLOXACIN [Concomitant]
     Route: 065
  6. LITHIUM CARBONATE [Suspect]
     Indication: BIPOLAR DISORDER
     Route: 065
  7. BUPROPION HCL [Suspect]
     Indication: BIPOLAR DISORDER
     Route: 065
  8. VENLAFAXINE [Suspect]
     Indication: BIPOLAR DISORDER
     Route: 065
  9. SERTRALINE HYDROCHLORIDE [Suspect]
     Indication: BIPOLAR DISORDER
     Route: 065
  10. ACETAMINOPHEN [Concomitant]
     Route: 065

REACTIONS (1)
  - NEUROLEPTIC MALIGNANT SYNDROME [None]
